FAERS Safety Report 7508609-3 (Version None)
Quarter: 2011Q2

REPORT INFORMATION
  Report Type: 
  Country: None (occurrence: None)
  Receive Date: 20110527
  Receipt Date: 20110112
  Transmission Date: 20111010
  Serious: No
  Sender: FDA-Public Use
  Company Number: A0906808A

PATIENT
  Age: 53 Year
  Sex: Female
  Weight: 53.1 kg

DRUGS (16)
  1. ASCORBIC ACID [Concomitant]
  2. CRESTOR [Concomitant]
     Dosage: 20MG PER DAY
  3. LASIX [Concomitant]
     Dosage: 40MG PER DAY
  4. ACETAMINOPHEN [Concomitant]
     Dosage: 500MG AS REQUIRED
  5. ZYRTEC-D 12 HOUR [Concomitant]
  6. LANOXIN [Concomitant]
     Dosage: .25MG PER DAY
  7. MUCINEX [Concomitant]
  8. SPIRONOLACTONE [Concomitant]
     Dosage: 50MG TWICE PER DAY
  9. LOVAZA [Concomitant]
  10. PEPCID [Concomitant]
     Dosage: 40MG AS REQUIRED
  11. CALCIUM + VITAMIN D [Concomitant]
  12. MIDODRINE HYDROCHLORIDE [Concomitant]
  13. NEXAVAR [Concomitant]
     Dosage: 200MG PER DAY
  14. FLOLAN [Suspect]
     Indication: PULMONARY ARTERIAL HYPERTENSION
     Route: 065
     Dates: start: 19970911
  15. M.V.I. [Concomitant]
  16. ALENDRONATE SODIUM [Concomitant]
     Dosage: 70MG WEEKLY

REACTIONS (3)
  - FLUSHING [None]
  - DIARRHOEA [None]
  - PAIN IN JAW [None]
